FAERS Safety Report 10560297 (Version 1)
Quarter: 2014Q4

REPORT INFORMATION
  Report Type: Spontaneous
  Country: US (occurrence: None)
  Receive Date: 20141031
  Receipt Date: 20141031
  Transmission Date: 20150529
  Serious: Yes (Disabling)
  Sender: FDA-Public Use
  Company Number: None

PATIENT
  Age: 43 Year
  Sex: Male
  Weight: 70.31 kg

DRUGS (1)
  1. FINESTERIDE [Suspect]
     Active Substance: FINASTERIDE
     Indication: ALOPECIA
     Route: 048

REACTIONS (7)
  - Cranial nerve disorder [None]
  - Insomnia [None]
  - Erectile dysfunction [None]
  - Anxiety disorder [None]
  - Trigeminal nerve disorder [None]
  - Neuropathy peripheral [None]
  - Ejaculation failure [None]

NARRATIVE: CASE EVENT DATE: 20041020
